FAERS Safety Report 17315320 (Version 2)
Quarter: 2020Q1

REPORT INFORMATION
  Report Type: Spontaneous
  Country: US (occurrence: US)
  Receive Date: 20200124
  Receipt Date: 20200218
  Transmission Date: 20200409
  Serious: No
  Sender: FDA-Public Use
  Company Number: US-VERTEX PHARMACEUTICALS-2020-000822

PATIENT
  Age: 78 Year
  Sex: Female

DRUGS (1)
  1. TRIKAFTA [Suspect]
     Active Substance: ELEXACAFTOR\IVACAFTOR\TEZACAFTOR
     Indication: CYSTIC FIBROSIS
     Dosage: 2 TABLETS(100MG ELEXACAFTOR/50MG TEZACAFTOR/75MG IVACAFTOR) AM AND 1 TABLET(150MG IVACAFTOR)PM
     Route: 048
     Dates: start: 20200107, end: 20200121

REACTIONS (4)
  - Urticaria [Unknown]
  - Dry eye [Unknown]
  - Swollen tongue [Unknown]
  - Lip swelling [Unknown]

NARRATIVE: CASE EVENT DATE: 202001
